FAERS Safety Report 9755913 (Version 1)
Quarter: 2013Q4

REPORT INFORMATION
  Report Type: Spontaneous
  Country: US (occurrence: US)
  Receive Date: 20131213
  Receipt Date: 20131213
  Transmission Date: 20140711
  Serious: No
  Sender: FDA-Public Use
  Company Number: US-GLAXOSMITHKLINE-A1026219A

PATIENT
  Age: 55 Year
  Sex: Female

DRUGS (2)
  1. EQUATE NTS 14MG, CLEAR [Suspect]
     Indication: EX-TOBACCO USER
     Route: 062
     Dates: start: 20130602, end: 20130605
  2. OTHER MEDICATIONS [Concomitant]

REACTIONS (6)
  - Diarrhoea [Recovered/Resolved]
  - Vomiting [Unknown]
  - Headache [Unknown]
  - Nausea [Unknown]
  - Application site pain [Unknown]
  - Application site vesicles [Unknown]
